FAERS Safety Report 23422933 (Version 1)
Quarter: 2024Q1

REPORT INFORMATION
  Report Type: Spontaneous
  Country: US (occurrence: None)
  Receive Date: 20240119
  Receipt Date: 20240119
  Transmission Date: 20240410
  Serious: Yes (Hospitalization)
  Sender: FDA-Public Use
  Company Number: None

PATIENT
  Age: 63 Year
  Sex: Male
  Weight: 70.6 kg

DRUGS (4)
  1. FLUOROURACIL [Suspect]
     Active Substance: FLUOROURACIL
  2. IRINOTECAN (CPT-11, CAMPTOSAR [Concomitant]
  3. LEUCOVORIN CALCIUM [Concomitant]
  4. ELOXATIN [Concomitant]
     Active Substance: OXALIPLATIN

REACTIONS (5)
  - Haematochezia [None]
  - Haemoglobin decreased [None]
  - Thrombocytopenia [None]
  - Myelosuppression [None]
  - Oedema peripheral [None]

NARRATIVE: CASE EVENT DATE: 20240109
